FAERS Safety Report 18600029 (Version 1)
Quarter: 2020Q4

REPORT INFORMATION
  Report Type: Spontaneous
  Country: BR (occurrence: BR)
  Receive Date: 20201210
  Receipt Date: 20201210
  Transmission Date: 20210114
  Serious: Yes (Other)
  Sender: FDA-Public Use
  Company Number: BR-PFIZER INC-2020483181

PATIENT
  Age: 91 Year
  Sex: Female

DRUGS (1)
  1. XALATAN [Suspect]
     Active Substance: LATANOPROST
     Dosage: 2 DROP, DAILY (ONE DROP IN EACH EYE A DAY)

REACTIONS (6)
  - Blood pressure fluctuation [Unknown]
  - Glaucoma [Unknown]
  - Eye pain [Unknown]
  - Hypoacusis [Unknown]
  - Blindness [Unknown]
  - Eye disorder [Unknown]
